FAERS Safety Report 9717846 (Version 1)
Quarter: 2013Q4

REPORT INFORMATION
  Report Type: Spontaneous
  Country: US (occurrence: US)
  Receive Date: 20131125
  Receipt Date: 20131125
  Transmission Date: 20140711
  Serious: No
  Sender: FDA-Public Use
  Company Number: US-VIVUS-2012V1000272

PATIENT
  Age: 59 Year
  Sex: Female
  Weight: 98.97 kg

DRUGS (3)
  1. QSYMIA 7.5MG/46MG [Suspect]
     Indication: WEIGHT DECREASED
     Route: 048
     Dates: start: 20121121, end: 20121122
  2. QSYMIA 3.75MG/23MG [Suspect]
     Indication: WEIGHT DECREASED
     Route: 048
     Dates: start: 201210, end: 20121120
  3. SYNTHROID [Concomitant]
     Indication: HYPOTHYROIDISM
     Route: 048
     Dates: start: 2008

REACTIONS (5)
  - Panic attack [Recovered/Resolved]
  - Agitation [Recovered/Resolved]
  - Insomnia [Recovering/Resolving]
  - Anxiety [Recovered/Resolved]
  - Heart rate increased [Not Recovered/Not Resolved]
